FAERS Safety Report 7820396-8 (Version None)
Quarter: 2011Q4

REPORT INFORMATION
  Report Type: 
  Country: None (occurrence: None)
  Receive Date: 20111018
  Receipt Date: 20110916
  Transmission Date: 20120403
  Serious: Yes (Hospitalization)
  Sender: FDA-Public Use
  Company Number: US-ROCHE-780431

PATIENT
  Sex: Female
  Weight: 115.7 kg

DRUGS (31)
  1. PROTONIX [Concomitant]
     Indication: DYSPEPSIA
  2. ACTEMRA [Suspect]
     Route: 042
  3. ACTEMRA [Suspect]
     Route: 042
  4. LIDODERM [Concomitant]
     Indication: PAIN
  5. MELATONIN [Concomitant]
  6. ZETIA [Concomitant]
     Indication: BLOOD CHOLESTEROL
  7. GABAPENTIN [Concomitant]
     Indication: NERVE INJURY
     Dosage: 300 MG QAM, 600 MG QPM
  8. AMBIEN [Concomitant]
     Indication: SOMNOLENCE
  9. BENICAR HCT [Concomitant]
     Indication: BLOOD PRESSURE
  10. CALCIUM CARBONATE [Concomitant]
     Dosage: 1200 MG PM
  11. BUMETANIDE [Concomitant]
     Indication: OEDEMA PERIPHERAL
  12. CYCLOBENZAPRINE [Concomitant]
     Indication: MUSCULOSKELETAL STIFFNESS
  13. ACTEMRA [Suspect]
     Route: 042
  14. GENERIC COMPONENT(S) NOT KNOWN [Concomitant]
  15. POTASSIUM [Concomitant]
     Dosage: STRENGTH: 2.5 MEQ
  16. SKELAXIN [Concomitant]
     Indication: MUSCLE RELAXANT THERAPY
  17. VOLTAREN [Concomitant]
     Indication: MUSCULOSKELETAL PAIN
  18. ACTEMRA [Suspect]
     Indication: RHEUMATOID ARTHRITIS
     Dosage: STARTING DOSE: 4 MG/KG
     Route: 042
  19. ACTEMRA [Suspect]
     Route: 042
  20. CYMBALTA [Concomitant]
     Indication: PAIN
  21. PREDNISONE [Concomitant]
     Indication: RHEUMATOID ARTHRITIS
     Route: 048
  22. POTASSIUM CHLORIDE [Concomitant]
  23. ACTEMRA [Suspect]
     Route: 042
  24. FOLIC ACID [Concomitant]
     Route: 048
  25. FOLIC ACID [Concomitant]
     Route: 048
  26. LEVOTHYROXINE SODIUM [Concomitant]
  27. METHOTREXATE [Concomitant]
     Indication: RHEUMATOID ARTHRITIS
  28. ACTEMRA [Suspect]
     Dosage: FORM: INFUSION
     Route: 042
  29. CARVEDILOL [Concomitant]
  30. ETODOLAC [Concomitant]
     Route: 048
  31. NASONEX [Concomitant]
     Dosage: 2 NASAL SPRAYS IN EACH NOSTRILS. FREQUENCY: PRN
     Route: 050

REACTIONS (5)
  - ABDOMINAL PAIN [None]
  - WHITE BLOOD CELL COUNT DECREASED [None]
  - RASH [None]
  - DIARRHOEA HAEMORRHAGIC [None]
  - NEUTROPHIL COUNT DECREASED [None]
